FAERS Safety Report 4871151-2 (Version None)
Quarter: 2005Q4

REPORT INFORMATION
  Report Type: 
  Country: None (occurrence: None)
  Receive Date: 20051229
  Receipt Date: 20051222
  Transmission Date: 20060501
  Serious: Yes (Hospitalization, Other)
  Sender: FDA-Public Use
  Company Number: 2005-10-0988

PATIENT
  Age: 56 Year
  Sex: Female
  Weight: 68 kg

DRUGS (5)
  1. PEG-INTRON [Suspect]
     Indication: HEPATITIS C
     Dosage: 100 MCG QW SUBCUTANEOUS
     Route: 058
     Dates: start: 20050113, end: 20050512
  2. REBETOL [Suspect]
     Indication: HEPATITIS C
     Dosage: -800 MG* ORAL
     Route: 048
     Dates: start: 20040707, end: 20040707
  3. REBETOL [Suspect]
     Indication: HEPATITIS C
     Dosage: -800 MG* ORAL
     Route: 048
     Dates: start: 20050113, end: 20050512
  4. INTERFERON [Suspect]
     Indication: HEPATITIS C
     Dates: start: 20040707, end: 20040707
  5. URSO [Concomitant]

REACTIONS (4)
  - DIZZINESS [None]
  - HEPATIC STEATOSIS [None]
  - MALAISE [None]
  - RETINAL VEIN OCCLUSION [None]
